FAERS Safety Report 7219364-9 (Version None)
Quarter: 2011Q1

REPORT INFORMATION
  Report Type: 
  Country: None (occurrence: None)
  Receive Date: 20110111
  Receipt Date: 20110105
  Transmission Date: 20110831
  Serious: No
  Sender: FDA-Public Use
  Company Number: US-PFIZER INC-2011003883

PATIENT
  Sex: Female
  Weight: 104 kg

DRUGS (8)
  1. CITALOPRAM [Concomitant]
     Dosage: 40 MG, 1X/DAY
     Route: 048
  2. FAMOTIDINE [Concomitant]
     Indication: ULCER
     Dosage: 40 MG, 1X/DAY
     Route: 048
  3. CHANTIX [Suspect]
     Indication: SMOKING CESSATION THERAPY
     Dosage: 0.5 MG, 1X/DAY
     Route: 048
     Dates: start: 20110102
  4. CLONAZEPAM [Concomitant]
     Indication: ANXIETY
     Dosage: 1 MG, AS NEEDED
     Route: 048
  5. VERAPAMIL [Concomitant]
     Indication: BLOOD PRESSURE ABNORMAL
     Dosage: 240 MG, 1X/DAY
     Route: 048
  6. LEVOTHYROXINE [Concomitant]
     Indication: THYROID DISORDER
     Dosage: 25 MG, AS NEEDED
     Route: 048
  7. LEVOTHYROXINE [Concomitant]
     Indication: ANXIETY
  8. TRAZODONE [Concomitant]
     Indication: SLEEP DISORDER
     Dosage: 50 MG, 1X/DAY
     Route: 048

REACTIONS (2)
  - TOBACCO USER [None]
  - NAUSEA [None]
